FAERS Safety Report 5397153-8 (Version None)
Quarter: 2007Q3

REPORT INFORMATION
  Report Type: 
  Country: None (occurrence: None)
  Receive Date: 20070725
  Receipt Date: 20070715
  Transmission Date: 20080115
  Serious: Yes (Other)
  Sender: FDA-Public Use
  Company Number: US-PFIZER INC-2007059104

PATIENT
  Sex: Female
  Weight: 70.3 kg

DRUGS (5)
  1. CHANTIX [Suspect]
     Indication: SMOKING CESSATION THERAPY
  2. ALPRAZOLAM [Concomitant]
  3. SIMVASTATIN [Concomitant]
  4. LISINOPRIL AND HYDROCHLOROTHIAZIDE [Concomitant]
  5. PROAIR HFA [Concomitant]

REACTIONS (4)
  - AGITATION [None]
  - IRRITABILITY [None]
  - PREMENSTRUAL SYNDROME [None]
  - VIOLENCE-RELATED SYMPTOM [None]
